FAERS Safety Report 23896779 (Version 1)
Quarter: 2024Q2

REPORT INFORMATION
  Report Type: Spontaneous
  Country: AE (occurrence: AE)
  Receive Date: 20240524
  Receipt Date: 20240524
  Transmission Date: 20240717
  Serious: Yes (Other)
  Sender: FDA-Public Use
  Company Number: AE-BAXTER-2024BAX018424

PATIENT
  Age: 41 Year
  Sex: Female
  Weight: 117 kg

DRUGS (6)
  1. PROPOFOL [Suspect]
     Active Substance: PROPOFOL
     Indication: Sedative therapy
     Dosage: (PROVIVE 1%) (PROPOFOL INJECTION BP 1% W/V) (20 ML) (200+100) AT AN UNSPECIFIED FREQUENCY
     Route: 042
     Dates: start: 20240207
  2. PROPOFOL [Suspect]
     Active Substance: PROPOFOL
     Indication: Oesophagogastroduodenoscopy
  3. MIDAZOLAM [Suspect]
     Active Substance: MIDAZOLAM
     Indication: Sedative therapy
     Dosage: 2 MILLIGRAM (MG) AT AN UNSPECIFIED FREQUENCY
     Route: 042
     Dates: start: 20240207
  4. MIDAZOLAM [Suspect]
     Active Substance: MIDAZOLAM
     Indication: Oesophagogastroduodenoscopy
  5. KETAMINE [Suspect]
     Active Substance: KETAMINE
     Indication: Oesophagogastroduodenoscopy
     Dosage: 50 MILLIGRAM (MG) AT AN UNSPECIFIED FREQUENCY
     Route: 042
     Dates: start: 20240207
  6. KETAMINE [Suspect]
     Active Substance: KETAMINE
     Indication: Sedative therapy

REACTIONS (2)
  - Laryngospasm [Unknown]
  - Therapeutic product effect incomplete [Unknown]
